FAERS Safety Report 8370300-1 (Version None)
Quarter: 2012Q2

REPORT INFORMATION
  Report Type: 
  Country: None (occurrence: None)
  Receive Date: 20120518
  Receipt Date: 20110811
  Transmission Date: 20120825
  Serious: No
  Sender: FDA-Public Use
  Company Number: US-ASTRAZENECA-2011SE57209

PATIENT
  Sex: Female

DRUGS (4)
  1. PRILOSEC OTC [Suspect]
     Route: 048
     Dates: start: 20110701
  2. LANTUS [Concomitant]
     Dosage: UNKNOWN
  3. DIOVAN [Concomitant]
     Dosage: UNKNOWN
  4. METFORMIN HCL [Concomitant]
     Dosage: UNKNOWN

REACTIONS (2)
  - INCORRECT DRUG ADMINISTRATION DURATION [None]
  - AGEUSIA [None]
